FAERS Safety Report 19690338 (Version 1)
Quarter: 2021Q3

REPORT INFORMATION
  Report Type: Spontaneous
  Country: US (occurrence: US)
  Receive Date: 20210812
  Receipt Date: 20210812
  Transmission Date: 20211014
  Serious: No
  Sender: FDA-Public Use
  Company Number: US-GLAXOSMITHKLINE-US2021168396

PATIENT
  Sex: Female

DRUGS (1)
  1. FLOVENT HFA [Suspect]
     Active Substance: FLUTICASONE PROPIONATE
     Indication: PRODUCT USED FOR UNKNOWN INDICATION
     Dosage: 1 PUFF(S), BID, 110 ?G
     Route: 055

REACTIONS (5)
  - Dysgeusia [Unknown]
  - Intentional product misuse [Unknown]
  - Drug ineffective [Unknown]
  - Product dose omission issue [Unknown]
  - Intentional product use issue [Unknown]
